FAERS Safety Report 9931266 (Version 2)
Quarter: 2016Q2

REPORT INFORMATION
  Report Type: Report from Study
  Country: US (occurrence: US)
  Receive Date: 20140228
  Receipt Date: 20160510
  Transmission Date: 20160815
  Serious: Yes (Other)
  Sender: FDA-Public Use
  Company Number: US-ROCHE-1352657

PATIENT
  Sex: Female

DRUGS (4)
  1. AVASTIN [Suspect]
     Active Substance: BEVACIZUMAB
     Indication: CYSTOID MACULAR OEDEMA
  2. OZURDEX [Concomitant]
     Active Substance: DEXAMETHASONE
     Indication: CYSTOID MACULAR OEDEMA
     Route: 065
     Dates: start: 20120510
  3. OZURDEX [Concomitant]
     Active Substance: DEXAMETHASONE
     Indication: RETINAL VEIN OCCLUSION
  4. AVASTIN [Suspect]
     Active Substance: BEVACIZUMAB
     Indication: RETINAL VEIN OCCLUSION
     Dosage: MOST RECENT DOSE ON 27/DEC/2012
     Route: 050

REACTIONS (6)
  - Eye pruritus [Unknown]
  - Lacrimation increased [Unknown]
  - Eye allergy [Unknown]
  - Vitreous detachment [Unknown]
  - Vitreous floaters [Unknown]
  - Product use issue [Unknown]
